FAERS Safety Report 4940001-8 (Version None)
Quarter: 2006Q1

REPORT INFORMATION
  Report Type: 
  Country: None (occurrence: None)
  Receive Date: 20060307
  Receipt Date: 20060228
  Transmission Date: 20060701
  Serious: Yes (Other)
  Sender: FDA-Public Use
  Company Number: SUSI-2006-00252

PATIENT
  Age: 62 Year
  Sex: Male
  Weight: 77.1 kg

DRUGS (5)
  1. ADDERALL 10 [Suspect]
     Indication: ATTENTION DEFICIT/HYPERACTIVITY DISORDER
     Dosage: 40 MG, 3X/DAY;TID, UNK
     Dates: start: 20000101, end: 20060227
  2. COZAAR [Concomitant]
  3. LEVITRA (VARDENAFIL HYDROCHLORIDE0 [Concomitant]
  4. ASPIRIN   /00002701 (ACETYLSALICYLIC ACID) [Concomitant]
  5. GLUCOPHAGE [Concomitant]

REACTIONS (4)
  - BRONCHITIS [None]
  - CARDIAC FAILURE CONGESTIVE [None]
  - CARDIOMYOPATHY [None]
  - PRESCRIBED OVERDOSE [None]
